FAERS Safety Report 7407892-2 (Version None)
Quarter: 2011Q2

REPORT INFORMATION
  Report Type: 
  Country: None (occurrence: None)
  Receive Date: 20110412
  Receipt Date: 20110405
  Transmission Date: 20111010
  Serious: Yes (Hospitalization, Other)
  Sender: FDA-Public Use
  Company Number: US-AMGEN-USASP2011014218

PATIENT
  Age: 75 Year
  Sex: Male

DRUGS (2)
  1. ENBREL [Suspect]
     Indication: PSORIASIS
     Dosage: 50 MG, QWK
     Dates: start: 20040709, end: 20110101
  2. ENBREL [Suspect]
     Indication: PSORIATIC ARTHROPATHY

REACTIONS (7)
  - FATIGUE [None]
  - PSORIASIS [None]
  - PSORIATIC ARTHROPATHY [None]
  - RECTAL FISSURE [None]
  - CAROTID ENDARTERECTOMY [None]
  - RECTAL HAEMORRHAGE [None]
  - LUNG NEOPLASM MALIGNANT [None]
